FAERS Safety Report 8501116 (Version 2)
Quarter: 2013Q2

REPORT INFORMATION
  Report Type: Spontaneous
  Country: US (occurrence: None)
  Receive Date: 20120327
  Receipt Date: 20120709
  Transmission Date: 20140414
  Serious: Yes (Other)
  Sender: FDA-Public Use
  Company Number: PHHY2011US26546

PATIENT
  Age: 65 Year
  Sex: Male

DRUGS (1)
  1. GLEEVEC [Suspect]
     Indication: GASTRIC CANCER
     Dosage: 400 MG, QD, ORAL ; 400 MG, BID, ORAL
     Route: 048
     Dates: start: 20101210

REACTIONS (2)
  - Neoplasm progression [None]
  - Drug ineffective [None]
